FAERS Safety Report 9880284 (Version 2)
Quarter: 2014Q1

REPORT INFORMATION
  Report Type: Spontaneous
  Country: FR (occurrence: FR)
  Receive Date: 20140207
  Receipt Date: 20140207
  Transmission Date: 20141002
  Serious: Yes (Other)
  Sender: FDA-Public Use
  Company Number: FR-009507513-1311FRA011050

PATIENT
  Age: 49 Year
  Sex: Female
  Weight: 85 kg

DRUGS (14)
  1. JANUMET [Suspect]
     Indication: TYPE 2 DIABETES MELLITUS
     Dosage: 2 DF, QD
     Route: 048
     Dates: start: 20130702
  2. PREVISCAN [Concomitant]
  3. RABEPRAZOLE SODIUM [Concomitant]
  4. CHONDROSULF [Concomitant]
  5. ROPINIROLE [Concomitant]
  6. TRAMADOL HYDROCHLORIDE [Concomitant]
  7. LYRICA [Concomitant]
  8. TRANXENE [Concomitant]
  9. RIVOTRIL [Concomitant]
  10. DOMPERIDONE [Concomitant]
  11. TIORFAN [Concomitant]
  12. LOPERAMIDE HYDROCHLORIDE [Concomitant]
  13. SMECTA [Concomitant]
  14. CRESTOR [Concomitant]
     Indication: HYPERCHOLESTEROLAEMIA
     Dosage: 1 DF, QD
     Route: 048
     Dates: start: 1995

REACTIONS (3)
  - Weight decreased [Not Recovered/Not Resolved]
  - Diarrhoea [Recovering/Resolving]
  - Blood triglycerides increased [Unknown]
